FAERS Safety Report 20766786 (Version 1)
Quarter: 2022Q2

REPORT INFORMATION
  Report Type: Report from Study
  Country: US (occurrence: US)
  Receive Date: 20220429
  Receipt Date: 20220429
  Transmission Date: 20220721
  Serious: Yes (Death)
  Sender: FDA-Public Use
  Company Number: US-ABBVIE-22K-163-4374338-00

PATIENT
  Sex: Female

DRUGS (6)
  1. VENCLEXTA [Suspect]
     Active Substance: VENETOCLAX
     Indication: Chronic lymphocytic leukaemia
     Dosage: TAKE 20MG(2X10MG TABS) BY MOUTH EVERY DAY ON WEEK 1
     Route: 048
  2. VENCLEXTA [Suspect]
     Active Substance: VENETOCLAX
     Route: 048
  3. VENCLEXTA [Suspect]
     Active Substance: VENETOCLAX
     Dosage: TAKE 4 TAB BY MOUTH DAILY FOR 28 DAYS
     Route: 048
  4. GAZYVA [Suspect]
     Active Substance: OBINUTUZUMAB
     Indication: Chronic lymphocytic leukaemia
     Dosage: 100MG INTRAVENOUSLY DAY 1,
     Route: 042
  5. GAZYVA [Suspect]
     Active Substance: OBINUTUZUMAB
     Dosage: THEN 900MG DAY 2
     Route: 042
  6. GAZYVA [Suspect]
     Active Substance: OBINUTUZUMAB
     Dosage: 1000MG EVERY WEEK FOR 3 WEEK(S) THEN CYCLE 2 EVERY WEEK FOR 4 WEEK(S) THEN EVERY  MONTH
     Route: 042

REACTIONS (1)
  - Death [Fatal]
